FAERS Safety Report 6299629-8 (Version None)
Quarter: 2009Q3

REPORT INFORMATION
  Report Type: 
  Country: None (occurrence: None)
  Receive Date: 20090806
  Receipt Date: 20090729
  Transmission Date: 20100115
  Serious: Yes (Other)
  Sender: FDA-Public Use
  Company Number: US-GENENTECH-287970

PATIENT
  Sex: Female

DRUGS (2)
  1. XOLAIR [Suspect]
     Indication: DRUG USE FOR UNKNOWN INDICATION
  2. MEDICATION (UNK INGREDIENT) [Concomitant]
     Indication: ASTHMA

REACTIONS (2)
  - DYSPNOEA [None]
  - URTICARIA [None]
